FAERS Safety Report 4543397-4 (Version None)
Quarter: 2005Q1

REPORT INFORMATION
  Report Type: 
  Country: None (occurrence: None)
  Receive Date: 20050103
  Receipt Date: 20041222
  Transmission Date: 20050727
  Serious: Yes (Death, Other)
  Sender: FDA-Public Use
  Company Number: US-MERCK-0412USA02716

PATIENT
  Age: 57 Year
  Sex: Male

DRUGS (4)
  1. DECADRON [Suspect]
     Indication: GLIOBLASTOMA MULTIFORME
     Route: 048
  2. THALOMID [Suspect]
     Indication: GLIOBLASTOMA MULTIFORME
     Route: 048
     Dates: start: 20040618
  3. THALOMID [Suspect]
     Route: 048
     Dates: end: 20040802
  4. [THERAPY UNSPECIFIED] [Concomitant]
     Route: 065

REACTIONS (11)
  - ASTHENIA [None]
  - COORDINATION ABNORMAL [None]
  - DEEP VEIN THROMBOSIS [None]
  - GLIOBLASTOMA MULTIFORME [None]
  - MUSCULAR WEAKNESS [None]
  - MYOPATHY STEROID [None]
  - NEOPLASM PROGRESSION [None]
  - PARAPLEGIA [None]
  - PNEUMOCYSTIS JIROVECI PNEUMONIA [None]
  - PNEUMONIA [None]
  - WEIGHT DECREASED [None]
